FAERS Safety Report 25622783 (Version 1)
Quarter: 2025Q3

REPORT INFORMATION
  Report Type: Spontaneous
  Country: MY (occurrence: MY)
  Receive Date: 20250730
  Receipt Date: 20250730
  Transmission Date: 20251021
  Serious: Yes (Other)
  Sender: FRESENIUS KABI
  Company Number: MY-FreseniusKabi-FK202510225

PATIENT
  Age: 60 Year
  Sex: Female

DRUGS (1)
  1. PACLITAXEL [Suspect]
     Active Substance: PACLITAXEL
     Indication: Ovarian cancer
     Route: 042

REACTIONS (5)
  - Hypoaesthesia oral [Recovered/Resolved]
  - Hot flush [Recovered/Resolved]
  - Dizziness [Recovered/Resolved]
  - Unresponsive to stimuli [Recovered/Resolved]
  - Blood pressure decreased [Recovered/Resolved]
